FAERS Safety Report 4517276-2 (Version None)
Quarter: 2004Q4

REPORT INFORMATION
  Report Type: 
  Country: None (occurrence: None)
  Receive Date: 20041008
  Receipt Date: 20040721
  Transmission Date: 20050328
  Serious: No
  Sender: FDA-Public Use
  Company Number: 2004S1000156

PATIENT
  Age: 71 Year
  Sex: Male

DRUGS (1)
  1. CUBICIN [Suspect]
     Indication: GLYCOPEPTIDE ANTIBIOTIC RESISTANT ENTEROCOCCAL INFECTION
     Dosage: 5 MG/KG; Q24H; IV
     Route: 042
     Dates: start: 20040624

REACTIONS (1)
  - HYPOGLYCAEMIA [None]
